FAERS Safety Report 8165708-3 (Version None)
Quarter: 2012Q1

REPORT INFORMATION
  Report Type: 
  Country: None (occurrence: None)
  Receive Date: 20120227
  Receipt Date: 20120223
  Transmission Date: 20120608
  Serious: Yes (Other)
  Sender: FDA-Public Use
  Company Number: US-AMGEN-USASP2012012198

PATIENT
  Age: 59 Year
  Sex: Male

DRUGS (2)
  1. NPLATE [Suspect]
     Indication: IDIOPATHIC THROMBOCYTOPENIC PURPURA
     Dates: start: 20120101
  2. PROPAFENONE HCL [Concomitant]

REACTIONS (2)
  - PLATELET COUNT INCREASED [None]
  - INCORRECT DOSE ADMINISTERED [None]
